FAERS Safety Report 19943340 (Version 2)
Quarter: 2021Q4

REPORT INFORMATION
  Report Type: Report from Study
  Country: US (occurrence: US)
  Receive Date: 20211012
  Receipt Date: 20211228
  Transmission Date: 20220304
  Serious: Yes (Hospitalization)
  Sender: FDA-Public Use
  Company Number: US-ABBVIE-21K-163-4114888-00

PATIENT
  Sex: Female
  Weight: 80.358 kg

DRUGS (2)
  1. RINVOQ [Suspect]
     Active Substance: UPADACITINIB
     Indication: Rheumatoid arthritis
     Route: 048
     Dates: start: 20201207, end: 20211021
  2. RINVOQ [Suspect]
     Active Substance: UPADACITINIB
     Indication: Osteomyelitis

REACTIONS (1)
  - Vertebral column mass [Unknown]
